FAERS Safety Report 12539435 (Version 1)
Quarter: 2016Q3

REPORT INFORMATION
  Report Type: Spontaneous
  Country: US (occurrence: None)
  Receive Date: 20160707
  Receipt Date: 20160707
  Transmission Date: 20161109
  Serious: Yes (Other)
  Sender: FDA-Public Use
  Company Number: None

PATIENT
  Age: 45 Year
  Sex: Male
  Weight: 68.95 kg

DRUGS (2)
  1. BACLOFEN, 10MG [Suspect]
     Active Substance: BACLOFEN
     Indication: MYALGIA
     Dosage: 1-2
     Route: 048
     Dates: start: 20160311, end: 20160315
  2. GABAPENTIN. [Concomitant]
     Active Substance: GABAPENTIN

REACTIONS (1)
  - Dystonia [None]

NARRATIVE: CASE EVENT DATE: 20160311
